FAERS Safety Report 9543796 (Version 1)
Quarter: 2013Q3

REPORT INFORMATION
  Report Type: Spontaneous
  Country: BR (occurrence: BR)
  Receive Date: 20130923
  Receipt Date: 20130923
  Transmission Date: 20140515
  Serious: Yes (Hospitalization)
  Sender: FDA-Public Use
  Company Number: BR-PFIZER INC-2013271186

PATIENT
  Age: 69 Year
  Sex: Male

DRUGS (4)
  1. LIPITOR [Suspect]
     Indication: BLOOD CHOLESTEROL
     Dosage: 20 MG, 1X/DAY
     Route: 048
     Dates: start: 20110711
  2. XALATAN [Suspect]
     Indication: GLAUCOMA
     Dosage: 1 GTT, UNK
     Route: 047
     Dates: start: 20120515
  3. CLORANA [Concomitant]
     Indication: DIURETIC THERAPY
     Dosage: 50 MG, UNK
  4. RENITEC [Concomitant]
     Indication: HYPERTENSION

REACTIONS (2)
  - Cerebrovascular accident [Unknown]
  - Malaise [Unknown]
